FAERS Safety Report 25464851 (Version 1)
Quarter: 2025Q2

REPORT INFORMATION
  Report Type: Spontaneous
  Country: US (occurrence: US)
  Receive Date: 20250622
  Receipt Date: 20250622
  Transmission Date: 20250717
  Serious: No
  Sender: UCB
  Company Number: US-UCBSA-2025034940

PATIENT
  Sex: Male

DRUGS (1)
  1. NEUPRO [Suspect]
     Active Substance: ROTIGOTINE
     Indication: Restless legs syndrome
     Route: 062
     Dates: start: 2025, end: 202505

REACTIONS (7)
  - Brain fog [Unknown]
  - Cold sweat [Unknown]
  - Feeling abnormal [Unknown]
  - Hypopnoea [Unknown]
  - Somnolence [Unknown]
  - Fatigue [Unknown]
  - Product adhesion issue [Unknown]

NARRATIVE: CASE EVENT DATE: 20250101
